FAERS Safety Report 23343316 (Version 1)
Quarter: 2023Q4

REPORT INFORMATION
  Report Type: Spontaneous
  Country: JP (occurrence: JP)
  Receive Date: 20231227
  Receipt Date: 20231227
  Transmission Date: 20240110
  Serious: Yes (Other)
  Sender: FDA-Public Use
  Company Number: JP-PFIZER INC-PV202300205643

PATIENT

DRUGS (1)
  1. NGENLA [Suspect]
     Active Substance: SOMATROGON-GHLA
     Dosage: 20 MG, WEEKLY
     Route: 058

REACTIONS (5)
  - Meningitis [Unknown]
  - Pyrexia [Unknown]
  - Pharyngeal inflammation [Unknown]
  - Oropharyngeal pain [Unknown]
  - Headache [Unknown]
